FAERS Safety Report 9478140 (Version 1)
Quarter: 2013Q3

REPORT INFORMATION
  Report Type: Spontaneous
  Country: US (occurrence: None)
  Receive Date: 20130813
  Receipt Date: 20130813
  Transmission Date: 20140515
  Serious: Yes (Other)
  Sender: FDA-Public Use
  Company Number: 2013037383

PATIENT
  Sex: Female
  Weight: 54.43 kg

DRUGS (16)
  1. HIZENTRA (IMMUNOGLOBULIN HUMAN NORMAL) [Suspect]
     Indication: HYPOGAMMAGLOBULINAEMIA
     Dosage: 10 G, 1X/WEEK, 2 GM 10 ML; OVER 1-2 HOURS SUBCUTANEOUS
     Route: 058
  2. EPIPEN [Concomitant]
  3. NEUPOGEN [Concomitant]
  4. EMEND (APREPITANT) [Concomitant]
  5. IRON (IRON) [Concomitant]
  6. ROBITUSSIN (GUAIFENESIN) [Concomitant]
  7. OXCARBAZEPINE (OXCARBAZEPINE) TABLET, 300MG [Concomitant]
  8. VITAMIN D (ERGOCALCIFEROL) [Concomitant]
  9. FOLIC ACID (FOLIC ACID) [Concomitant]
  10. TRAMADOL (TRAMADOL) [Concomitant]
  11. SYMBICORT (BUDESONIDE W/FORMOTEROL FUMARATE0 [Concomitant]
  12. COUMADIN (WARFARIN SODIUM) [Concomitant]
  13. AMITRIPTYLINE (AMITRIPTYLINE) [Concomitant]
  14. PRILOSEC [Concomitant]
  15. EFFEXOR (VENLAFAXINE) [Concomitant]
  16. NEURONTIN (GABAPENTIN) [Concomitant]

REACTIONS (4)
  - Infusion site infection [None]
  - Pyrexia [None]
  - Infusion site mass [None]
  - Infusion site erythema [None]
